FAERS Safety Report 4823703-3 (Version None)
Quarter: 2005Q4

REPORT INFORMATION
  Report Type: 
  Country: None (occurrence: None)
  Receive Date: 20051107
  Receipt Date: 20051025
  Transmission Date: 20060501
  Serious: Yes (Other)
  Sender: FDA-Public Use
  Company Number: 2005149705

PATIENT
  Sex: Male

DRUGS (1)
  1. DETROL LA [Suspect]
     Indication: POLLAKIURIA
     Dosage: (4 MG)
     Dates: start: 20050901

REACTIONS (4)
  - FALL [None]
  - NOCTURIA [None]
  - POLLAKIURIA [None]
  - WRIST FRACTURE [None]
